FAERS Safety Report 21249067 (Version 1)
Quarter: 2022Q3

REPORT INFORMATION
  Report Type: Report from Study
  Country: CA (occurrence: CA)
  Receive Date: 20220824
  Receipt Date: 20220824
  Transmission Date: 20221027
  Serious: Yes (Other)
  Sender: FDA-Public Use
  Company Number: CA-PFIZER INC-202201081141

PATIENT
  Age: 56 Year
  Sex: Male

DRUGS (6)
  1. METHOTREXATE SODIUM [Suspect]
     Active Substance: METHOTREXATE SODIUM
     Dosage: UNK
     Route: 065
  2. METHOTREXATE SODIUM [Suspect]
     Active Substance: METHOTREXATE SODIUM
     Dosage: UNK, WEEKLY
     Route: 058
  3. CELEBREX [Concomitant]
     Active Substance: CELECOXIB
     Indication: Adenomatous polyposis coli
     Route: 048
  4. EPIPEN JR [Concomitant]
     Active Substance: EPINEPHRINE
     Indication: Food allergy
     Route: 058
  5. SULFASALAZINE [Concomitant]
     Active Substance: SULFASALAZINE
     Dosage: UNK
     Route: 048
  6. SULFASALAZINE [Concomitant]
     Active Substance: SULFASALAZINE
     Dosage: UNK
     Route: 048

REACTIONS (7)
  - Dyspepsia [Unknown]
  - Gait disturbance [Unknown]
  - Movement disorder [Unknown]
  - Nausea [Unknown]
  - Pain [Unknown]
  - Psoriatic arthropathy [Unknown]
  - Treatment failure [Unknown]
